FAERS Safety Report 10385636 (Version 2)
Quarter: 2014Q3

REPORT INFORMATION
  Report Type: Spontaneous
  Country: FR (occurrence: FR)
  Receive Date: 20140814
  Receipt Date: 20140911
  Transmission Date: 20150326
  Serious: Yes (Death)
  Sender: FDA-Public Use
  Company Number: FR-ASTRAZENECA-2014SE59144

PATIENT
  Sex: Female

DRUGS (4)
  1. IMIGRANE [Suspect]
     Active Substance: SUMATRIPTAN SUCCINATE
     Route: 064
     Dates: start: 2013, end: 2013
  2. SEROPRAM [Suspect]
     Active Substance: CITALOPRAM HYDROBROMIDE
     Route: 064
     Dates: end: 201403
  3. NOCERTONE [Suspect]
     Active Substance: OXETORONE
     Indication: MIGRAINE
     Route: 064
     Dates: end: 201309
  4. ZOMIG [Suspect]
     Active Substance: ZOLMITRIPTAN
     Route: 064
     Dates: start: 2013, end: 2013

REACTIONS (2)
  - Congenital cardiovascular anomaly [Fatal]
  - Meningomyelocele [Fatal]

NARRATIVE: CASE EVENT DATE: 201403
